APPROVED DRUG PRODUCT: ELETRIPTAN HYDROBROMIDE
Active Ingredient: ELETRIPTAN HYDROBROMIDE
Strength: EQ 20MG BASE
Dosage Form/Route: TABLET;ORAL
Application: A205186 | Product #001 | TE Code: AB
Applicant: CHARTWELL RX SCIENCES LLC
Approved: Aug 29, 2017 | RLD: No | RS: No | Type: RX